FAERS Safety Report 7077664-X (Version None)
Quarter: 2010Q4

REPORT INFORMATION
  Report Type: 
  Country: None (occurrence: None)
  Receive Date: 20101101
  Receipt Date: 20101026
  Transmission Date: 20110411
  Serious: Yes (Life-Threatening, Other)
  Sender: FDA-Public Use
  Company Number: US-BAYER-201038561NA

PATIENT
  Age: 37 Year
  Sex: Male

DRUGS (2)
  1. AVELOX [Suspect]
     Indication: NASOPHARYNGITIS
     Dosage: UNIT DOSE: 400 MG
     Route: 048
     Dates: start: 20101012, end: 20101012
  2. PREDNISONE [Concomitant]

REACTIONS (2)
  - RASH [None]
  - SWELLING FACE [None]
